FAERS Safety Report 5765489-4 (Version None)
Quarter: 2008Q2

REPORT INFORMATION
  Report Type: 
  Country: None (occurrence: None)
  Receive Date: 20080611
  Receipt Date: 20080529
  Transmission Date: 20081010
  Serious: Yes (Hospitalization)
  Sender: FDA-Public Use
  Company Number: B0522968A

PATIENT
  Age: 64 Year
  Sex: Female

DRUGS (9)
  1. CLAVENTIN [Suspect]
     Dosage: 5G THREE TIMES PER DAY
     Route: 042
     Dates: start: 20080430, end: 20080502
  2. FORTUM [Suspect]
     Dosage: 2G THREE TIMES PER DAY
     Route: 042
     Dates: start: 20080502, end: 20080505
  3. BACTRIM [Suspect]
     Dosage: 400MG TWICE PER DAY
     Route: 048
     Dates: start: 20080430, end: 20080505
  4. REVLIMID [Concomitant]
     Indication: DRUG USE FOR UNKNOWN INDICATION
     Dosage: 25MG PER DAY
     Route: 065
  5. ZOMETA [Concomitant]
     Indication: DRUG USE FOR UNKNOWN INDICATION
     Dosage: 4MG PER DAY
     Route: 065
  6. LOXEN LP 50 MG [Concomitant]
     Indication: DRUG USE FOR UNKNOWN INDICATION
     Dosage: 50MG TWICE PER DAY
     Route: 048
  7. BRICANYL [Concomitant]
     Indication: DRUG USE FOR UNKNOWN INDICATION
     Route: 065
  8. SPIRIVA [Concomitant]
     Indication: DRUG USE FOR UNKNOWN INDICATION
     Route: 065
  9. OXYGENE [Concomitant]
     Route: 045
     Dates: start: 20070101

REACTIONS (8)
  - C-REACTIVE PROTEIN INCREASED [None]
  - DRUG HYPERSENSITIVITY [None]
  - DYSPNOEA [None]
  - LYMPHOPENIA [None]
  - OXYGEN SATURATION DECREASED [None]
  - PRURIGO [None]
  - PYREXIA [None]
  - RASH ERYTHEMATOUS [None]
